FAERS Safety Report 5066413-2 (Version None)
Quarter: 2006Q3

REPORT INFORMATION
  Report Type: 
  Country: None (occurrence: None)
  Receive Date: 20060728
  Receipt Date: 20060714
  Transmission Date: 20061208
  Serious: Yes (Hospitalization, Other)
  Sender: FDA-Public Use
  Company Number: HQWYE451820AUG04

PATIENT
  Age: 35 Year
  Sex: Female

DRUGS (6)
  1. TACROLIMUS, CONTROL FOR SIROLIMUS (TACROLIMUS, CONTROL FOR SIROLIMUS) [Suspect]
     Indication: PROPHYLAXIS AGAINST TRANSPLANT REJECTION
     Dosage: 2 MG 2X PER 1 DAY, ORAL; SEE IMAGE
     Route: 048
     Dates: start: 20040808, end: 20040801
  2. TACROLIMUS, CONTROL FOR SIROLIMUS (TACROLIMUS, CONTROL FOR SIROLIMUS) [Suspect]
     Indication: PROPHYLAXIS AGAINST TRANSPLANT REJECTION
     Dosage: 2 MG 2X PER 1 DAY, ORAL; SEE IMAGE
     Route: 048
     Dates: start: 20040801
  3. CELLCEPT [Suspect]
     Indication: PROPHYLAXIS AGAINST TRANSPLANT REJECTION
     Dosage: 1 G 2X PER 1 DAY, ORAL
     Route: 048
  4. PREDNISONE TAB [Suspect]
     Indication: PROPHYLAXIS AGAINST TRANSPLANT REJECTION
     Dosage: 2 MG 1X PER 1 DAY, ORAL
     Route: 048
  5. ZENAPAX [Concomitant]
  6. CLONIDINE [Concomitant]

REACTIONS (9)
  - ABDOMINAL PAIN [None]
  - CHEST PAIN [None]
  - COMPUTERISED TOMOGRAM ABDOMEN ABNORMAL [None]
  - CONDITION AGGRAVATED [None]
  - HYPERTENSION [None]
  - NAUSEA [None]
  - OESOPHAGITIS [None]
  - TACHYCARDIA [None]
  - VOMITING [None]
